FAERS Safety Report 4676770-4 (Version None)
Quarter: 2005Q2

REPORT INFORMATION
  Report Type: 
  Country: None (occurrence: None)
  Receive Date: 20050527
  Receipt Date: 20030407
  Transmission Date: 20051028
  Serious: Yes (Life-Threatening, Hospitalization, Disabling)
  Sender: FDA-Public Use
  Company Number: US-MERCK-0304USA00814

PATIENT
  Age: 56 Year
  Sex: Male
  Weight: 76 kg

DRUGS (9)
  1. VIOXX [Suspect]
     Indication: PERIODONTAL OPERATION
     Route: 048
     Dates: start: 20010111, end: 20010117
  2. VIOXX [Suspect]
     Route: 048
     Dates: start: 20010201, end: 20010207
  3. VIOXX [Suspect]
     Indication: TOOTH EXTRACTION
     Route: 048
     Dates: start: 20010111, end: 20010117
  4. VIOXX [Suspect]
     Route: 048
     Dates: start: 20010201, end: 20010207
  5. LORAZEPAM [Concomitant]
     Route: 065
  6. AMOXICILLIN [Concomitant]
     Route: 065
  7. HYDROCODONE BITARTRATE [Concomitant]
     Indication: DENTAL OPERATION
     Route: 065
  8. VIAGRA [Concomitant]
     Route: 065
  9. CHLORHEXIDINE HYDROCHLORIDE [Concomitant]
     Route: 065

REACTIONS (33)
  - ANAEMIA POSTOPERATIVE [None]
  - ANEURYSM [None]
  - ANTINUCLEAR ANTIBODY POSITIVE [None]
  - AORTIC DISSECTION [None]
  - AORTIC VALVE INCOMPETENCE [None]
  - ASTHENIA [None]
  - CHRONIC OBSTRUCTIVE PULMONARY DISEASE [None]
  - COAGULOPATHY [None]
  - DEPRESSION [None]
  - DISTURBANCE IN ATTENTION [None]
  - DIVERTICULITIS [None]
  - DIZZINESS [None]
  - EMOTIONAL DISTRESS [None]
  - GASTROOESOPHAGEAL REFLUX DISEASE [None]
  - GENERAL PHYSICAL CONDITION ABNORMAL [None]
  - HAEMORRHAGE [None]
  - HYPERTENSION [None]
  - ILIAC ARTERY THROMBOSIS [None]
  - IMPAIRED HEALING [None]
  - INJURY [None]
  - INTERMITTENT CLAUDICATION [None]
  - IRRITABILITY [None]
  - KELOID SCAR [None]
  - MITRAL VALVE INCOMPETENCE [None]
  - MYOCARDIAL INFARCTION [None]
  - PAIN [None]
  - PNEUMONIA [None]
  - RASH PRURITIC [None]
  - SELF ESTEEM DECREASED [None]
  - SEXUAL DYSFUNCTION [None]
  - SINUS BRADYCARDIA [None]
  - TRICUSPID VALVE INCOMPETENCE [None]
  - VASCULAR INJURY [None]
